FAERS Safety Report 22747642 (Version 3)
Quarter: 2024Q2

REPORT INFORMATION
  Report Type: Spontaneous
  Country: AU (occurrence: AU)
  Receive Date: 20230725
  Receipt Date: 20240412
  Transmission Date: 20240715
  Serious: Yes (Hospitalization, Other)
  Sender: FDA-Public Use
  Company Number: AU-TASMAN PHARMA, INC.-2023TSM00131

PATIENT
  Sex: Female

DRUGS (27)
  1. VERSACLOZ [Suspect]
     Active Substance: CLOZAPINE
     Dosage: 450 MG
     Dates: start: 20221015, end: 20221102
  2. VERSACLOZ [Suspect]
     Active Substance: CLOZAPINE
     Dosage: 500 MG
     Dates: start: 20221103, end: 20221212
  3. VERSACLOZ [Suspect]
     Active Substance: CLOZAPINE
     Dosage: 500 MG
     Dates: start: 20230125, end: 20230320
  4. VERSACLOZ [Suspect]
     Active Substance: CLOZAPINE
     Dosage: 500 MG
     Dates: start: 20230419, end: 20230516
  5. VERSACLOZ [Suspect]
     Active Substance: CLOZAPINE
     Dosage: 550 MG
     Dates: start: 20230517, end: 20230613
  6. VERSACLOZ [Suspect]
     Active Substance: CLOZAPINE
     Dosage: 600 MG
     Dates: start: 20230614, end: 202307
  7. VERSACLOZ [Suspect]
     Active Substance: CLOZAPINE
     Dosage: 200 MG
     Dates: start: 20230804, end: 20230809
  8. VERSACLOZ [Suspect]
     Active Substance: CLOZAPINE
     Dosage: 350 MG
     Dates: start: 20230823, end: 20230903
  9. VERSACLOZ [Suspect]
     Active Substance: CLOZAPINE
     Dosage: 450 MG
     Dates: start: 20230912, end: 20230926
  10. VERSACLOZ [Suspect]
     Active Substance: CLOZAPINE
     Dosage: 450 MG
     Dates: start: 20231011, end: 20240103
  11. VERSACLOZ [Suspect]
     Active Substance: CLOZAPINE
     Dosage: 25 MG
     Dates: start: 20240104, end: 20240110
  12. VERSACLOZ [Suspect]
     Active Substance: CLOZAPINE
     Dosage: 450 MG
     Dates: start: 20240123, end: 20240310
  13. VERSACLOZ [Suspect]
     Active Substance: CLOZAPINE
     Dosage: UNK
     Dates: start: 20240314, end: 20240318
  14. VERSACLOZ [Suspect]
     Active Substance: CLOZAPINE
     Dosage: 125 MG
     Dates: start: 20240319, end: 20240327
  15. CLOZAPINE [Suspect]
     Active Substance: CLOZAPINE
     Dosage: 500 MG
     Dates: start: 20221213, end: 20221227
  16. CLOZAPINE [Suspect]
     Active Substance: CLOZAPINE
     Dosage: 25 MG
     Dates: start: 20230726, end: 20230731
  17. CLOZAPINE [Suspect]
     Active Substance: CLOZAPINE
     Dosage: 50 MG
     Dates: start: 20230801, end: 20230803
  18. CLOZAPINE [Suspect]
     Active Substance: CLOZAPINE
     Dosage: 50 MG
     Dates: start: 20230814, end: 20230822
  19. CLOZAPINE [Suspect]
     Active Substance: CLOZAPINE
     Dosage: 450 MG
     Dates: start: 20230927, end: 20231010
  20. CLOZAPINE [Suspect]
     Active Substance: CLOZAPINE
     Dosage: 200 MG
     Dates: start: 20240328
  21. CLOZAPINE [Suspect]
     Active Substance: CLOZAPINE
     Dosage: 500 MG
     Dates: start: 20221228, end: 20230124
  22. CLOZAPINE [Suspect]
     Active Substance: CLOZAPINE
     Dosage: 500 MG
     Dates: start: 20230321, end: 20230418
  23. CLOZAPINE [Suspect]
     Active Substance: CLOZAPINE
     Dosage: 250 MG
     Dates: start: 20230810, end: 20230810
  24. CLOZAPINE [Suspect]
     Active Substance: CLOZAPINE
     Dosage: 450 MG
     Dates: start: 20230904, end: 20230911
  25. CLOZAPINE [Suspect]
     Active Substance: CLOZAPINE
     Dosage: 150 MG
     Dates: start: 20240111, end: 20240122
  26. OLANZAPINE [Suspect]
     Active Substance: OLANZAPINE
     Dosage: UNK
  27. CLOZAPINE [Suspect]
     Active Substance: CLOZAPINE
     Dosage: UNK
     Dates: start: 20230814

REACTIONS (6)
  - Hospitalisation [Recovered/Resolved]
  - Mental impairment [Unknown]
  - Neutropenia [Recovered/Resolved]
  - Treatment noncompliance [Recovered/Resolved]
  - Neutrophil count decreased [Recovered/Resolved]
  - White blood cell count decreased [Recovered/Resolved]

NARRATIVE: CASE EVENT DATE: 20221213
